APPROVED DRUG PRODUCT: DOXEPIN HYDROCHLORIDE
Active Ingredient: DOXEPIN HYDROCHLORIDE
Strength: EQ 6MG BASE
Dosage Form/Route: TABLET;ORAL
Application: A214823 | Product #002 | TE Code: BX
Applicant: MSN LABORATORIES PRIVATE LTD
Approved: Apr 3, 2023 | RLD: No | RS: No | Type: RX